FAERS Safety Report 6651136-6 (Version None)
Quarter: 2010Q1

REPORT INFORMATION
  Report Type: 
  Country: None (occurrence: None)
  Receive Date: 20100325
  Receipt Date: 20100301
  Transmission Date: 20100710
  Serious: Yes (Disabling, Other)
  Sender: FDA-Public Use
  Company Number: US-BAYER-200939236NA

PATIENT
  Age: 64 Year
  Sex: Female
  Weight: 61 kg

DRUGS (13)
  1. MAGNEVIST [Suspect]
     Indication: NUCLEAR MAGNETIC RESONANCE IMAGING BRAIN
     Dosage: TOTAL DAILY DOSE: 30 ML
     Route: 042
     Dates: start: 20050707, end: 20050707
  2. MAGNEVIST [Suspect]
     Dosage: TOTAL DAILY DOSE: 16 ML
     Dates: start: 20001002, end: 20001002
  3. MAGNEVIST [Suspect]
     Dosage: TOTAL DAILY DOSE: 15 ML
     Dates: start: 20001212, end: 20001212
  4. MAGNEVIST [Suspect]
     Dosage: TOTAL DAILY DOSE: 17 ML
     Dates: start: 20001104, end: 20001104
  5. OPTIMARK [Suspect]
     Indication: NUCLEAR MAGNETIC RESONANCE IMAGING BRAIN
     Dates: start: 20060922, end: 20060922
  6. OPTIMARK [Suspect]
     Dates: start: 20060203, end: 20060203
  7. OMNISCAN [Suspect]
     Indication: DRUG USE FOR UNKNOWN INDICATION
  8. MULTIHANCE [Suspect]
     Indication: DRUG USE FOR UNKNOWN INDICATION
  9. PROHANCE [Suspect]
     Indication: DRUG USE FOR UNKNOWN INDICATION
  10. UNIDENTIFIED GADOLINIUM BASED CONTRAST AGENT [Suspect]
     Indication: SCAN BRAIN
     Dates: start: 20000829, end: 20000829
  11. NEPHROCAPS [Concomitant]
  12. RENAGEL [Concomitant]
  13. PHOSLO [Concomitant]

REACTIONS (19)
  - ABASIA [None]
  - DEFORMITY [None]
  - ERYTHEMA [None]
  - GENERAL PHYSICAL HEALTH DETERIORATION [None]
  - INDURATION [None]
  - JOINT CONTRACTURE [None]
  - MOBILITY DECREASED [None]
  - NEPHROGENIC SYSTEMIC FIBROSIS [None]
  - OEDEMA PERIPHERAL [None]
  - PAIN [None]
  - SCAR [None]
  - SKIN ATROPHY [None]
  - SKIN DISCOLOURATION [None]
  - SKIN FIBROSIS [None]
  - SKIN HYPERPIGMENTATION [None]
  - SKIN HYPERTROPHY [None]
  - SKIN INDURATION [None]
  - SKIN TIGHTNESS [None]
  - SKIN WARM [None]
